FAERS Safety Report 14223343 (Version 1)
Quarter: 2017Q4

REPORT INFORMATION
  Report Type: Spontaneous
  Country: HR (occurrence: HR)
  Receive Date: 20171124
  Receipt Date: 20171124
  Transmission Date: 20180321
  Serious: Yes (Other)
  Sender: FDA-Public Use
  Company Number: HR-AMGEN-HRVSP2017174027

PATIENT
  Age: 68 Year
  Sex: Female

DRUGS (9)
  1. ISMN [Concomitant]
     Active Substance: ISOSORBIDE MONONITRATE
     Dosage: 20 MG, UNK
  2. ARANESP [Suspect]
     Active Substance: DARBEPOETIN ALFA
     Dosage: 60 MUG, QWK
     Route: 065
     Dates: start: 20170112, end: 2017
  3. NEBIVOLOL. [Concomitant]
     Active Substance: NEBIVOLOL
     Dosage: 2.5 MG, UNK
  4. FERROUS GLUCONATE [Concomitant]
     Active Substance: FERROUS GLUCONATE
     Dosage: 1 AMPULE IN 100 MI OF SALINE WATER / IN TOTAL 10 AMPULES
  5. ARANESP [Suspect]
     Active Substance: DARBEPOETIN ALFA
     Dosage: 30 MUG, Q2WK
     Route: 065
     Dates: start: 201706
  6. ARANESP [Suspect]
     Active Substance: DARBEPOETIN ALFA
     Dosage: 30 MUG, Q2WK
     Route: 065
     Dates: start: 20170316, end: 2017
  7. PERINDOPRIL/AMLODIPIN [Concomitant]
     Dosage: 10/10
  8. ARANESP [Suspect]
     Active Substance: DARBEPOETIN ALFA
     Dosage: 20 MUG, Q2WK
     Route: 065
     Dates: start: 20170414, end: 2017
  9. ARANESP [Suspect]
     Active Substance: DARBEPOETIN ALFA
     Indication: PRODUCT USED FOR UNKNOWN INDICATION
     Dosage: UNK
     Route: 065
     Dates: end: 2017

REACTIONS (22)
  - Blood urea abnormal [Unknown]
  - Cardiopulmonary failure [Unknown]
  - Blood creatinine abnormal [Unknown]
  - Mental disorder [Unknown]
  - Dysphagia [Unknown]
  - Cough [Unknown]
  - Hypertension [Unknown]
  - Haemoglobin abnormal [Unknown]
  - General physical health deterioration [Unknown]
  - Alopecia [Unknown]
  - Restless legs syndrome [Unknown]
  - Pallor [Unknown]
  - Headache [Unknown]
  - Mean cell volume abnormal [Unknown]
  - Platelet count abnormal [Unknown]
  - Fatigue [Unknown]
  - Blood glucose abnormal [Unknown]
  - Oral pain [Unknown]
  - Blood potassium abnormal [Unknown]
  - Onychoclasis [Unknown]
  - Nasopharyngitis [Unknown]
  - Dizziness [Unknown]
